FAERS Safety Report 25743582 (Version 1)
Quarter: 2025Q3

REPORT INFORMATION
  Report Type: Spontaneous
  Country: US (occurrence: US)
  Receive Date: 20250831
  Receipt Date: 20250831
  Transmission Date: 20251020
  Serious: No
  Sender: GALDERMA
  Company Number: US-GALDERMA-US2025014438

PATIENT

DRUGS (4)
  1. NEMLUVIO [Suspect]
     Active Substance: NEMOLIZUMAB-ILTO
     Indication: Eczema
     Route: 058
  2. NEMLUVIO [Suspect]
     Active Substance: NEMOLIZUMAB-ILTO
     Route: 058
  3. NEMLUVIO [Suspect]
     Active Substance: NEMOLIZUMAB-ILTO
     Route: 058
  4. EMGALITY [Concomitant]
     Active Substance: GALCANEZUMAB-GNLM
     Indication: Migraine
     Route: 065

REACTIONS (2)
  - Inappropriate schedule of product administration [Recovered/Resolved]
  - Device malfunction [Recovered/Resolved]

NARRATIVE: CASE EVENT DATE: 20250806
